FAERS Safety Report 4716431-6 (Version None)
Quarter: 2005Q3

REPORT INFORMATION
  Report Type: 
  Country: None (occurrence: None)
  Receive Date: 20050719
  Receipt Date: 20050707
  Transmission Date: 20060218
  Serious: Yes (Other)
  Sender: FDA-Public Use
  Company Number: US-JNJFOC-20050701649

PATIENT
  Sex: Female
  Weight: 59.42 kg

DRUGS (8)
  1. INFLIXIMAB [Suspect]
     Indication: RHEUMATOID ARTHRITIS
     Route: 042
  2. ARAVA [Concomitant]
  3. ACCUPRIL [Concomitant]
  4. NIFEDICAL [Concomitant]
  5. SALAGEN [Concomitant]
  6. ESTRACE [Concomitant]
  7. IBUPROFEN [Concomitant]
  8. ALLEGRA [Concomitant]

REACTIONS (1)
  - BASAL CELL CARCINOMA [None]
